FAERS Safety Report 8024873 (Version 4)
Quarter: 2013Q2

REPORT INFORMATION
  Report Type: Spontaneous
  Country: GB (occurrence: GB)
  Receive Date: 20110707
  Receipt Date: 20130626
  Transmission Date: 20140414
  Serious: Yes (Hospitalization)
  Sender: FDA-Public Use
  Company Number: GB-PFIZER INC-2011149579

PATIENT
  Age: 49 Year
  Sex: Female

DRUGS (4)
  1. AMLODIPINE BESILATE [Suspect]
     Dosage: UNK
     Dates: start: 20110615
  2. ATENOLOL [Suspect]
     Dosage: UNK
     Dates: start: 20110615
  3. AMISULPRIDE [Suspect]
     Dosage: UNK
  4. CLOZARIL [Suspect]
     Indication: SCHIZOPHRENIA
     Dosage: 150/400MG
     Route: 048
     Dates: start: 19990720

REACTIONS (5)
  - Overdose [Unknown]
  - Blood prolactin increased [Unknown]
  - Nausea [Unknown]
  - Vomiting [Unknown]
  - Sedation [Unknown]
